FAERS Safety Report 5939812-1 (Version None)
Quarter: 2008Q4

REPORT INFORMATION
  Report Type: 
  Country: None (occurrence: None)
  Receive Date: 20081104
  Receipt Date: 20081023
  Transmission Date: 20090506
  Serious: Yes (Other)
  Sender: FDA-Public Use
  Company Number: JP-JNJFOC-20080704301

PATIENT
  Sex: Female
  Weight: 59 kg

DRUGS (15)
  1. REMICADE [Suspect]
     Route: 042
  2. REMICADE [Suspect]
     Route: 042
  3. REMICADE [Suspect]
     Route: 042
  4. REMICADE [Suspect]
     Route: 042
  5. REMICADE [Suspect]
     Indication: RHEUMATOID ARTHRITIS
     Route: 042
  6. PREDNISOLONE [Suspect]
     Indication: RHEUMATOID ARTHRITIS
     Route: 048
  7. RHEUMATREX [Concomitant]
     Route: 048
  8. RHEUMATREX [Concomitant]
     Indication: RHEUMATOID ARTHRITIS
     Route: 048
  9. FOLIAMIN [Concomitant]
     Indication: RHEUMATOID ARTHRITIS
     Route: 048
  10. ISCOTIN [Concomitant]
     Indication: RHEUMATOID ARTHRITIS
     Route: 048
  11. CELECOX [Concomitant]
     Indication: RHEUMATOID ARTHRITIS
     Route: 048
  12. PROGRAF [Concomitant]
     Indication: RHEUMATOID ARTHRITIS
     Route: 048
  13. LENDORMIN [Concomitant]
     Indication: INSOMNIA
     Route: 048
  14. RANITAC [Concomitant]
     Indication: REFLUX OESOPHAGITIS
     Route: 048
  15. ANTIFUNGAL AGENT [Concomitant]

REACTIONS (1)
  - PNEUMONIA FUNGAL [None]
